FAERS Safety Report 25931576 (Version 1)
Quarter: 2025Q4

REPORT INFORMATION
  Report Type: Spontaneous
  Country: EU (occurrence: EU)
  Receive Date: 20251016
  Receipt Date: 20251016
  Transmission Date: 20260117
  Serious: Yes (Disabling)
  Sender: SANDOZ
  Company Number: EU-SANDOZ-SDZ2025PT076369

PATIENT
  Age: 68 Year
  Sex: Male

DRUGS (1)
  1. HYRIMOZ [Suspect]
     Active Substance: ADALIMUMAB-ADAZ
     Indication: Psoriatic arthropathy
     Dosage: 40 MG 14/14 DIAS
     Route: 058
     Dates: start: 20230310

REACTIONS (2)
  - Drug ineffective [Recovering/Resolving]
  - Product substitution issue [Recovering/Resolving]

NARRATIVE: CASE EVENT DATE: 20230310
